FAERS Safety Report 9702249 (Version 1)
Quarter: 2013Q4

REPORT INFORMATION
  Report Type: Spontaneous
  Country: US (occurrence: None)
  Receive Date: 20131119
  Receipt Date: 20131119
  Transmission Date: 20140711
  Serious: Yes (Disabling, Other)
  Sender: FDA-Public Use
  Company Number: 2013US002630

PATIENT
  Age: 66 Year
  Sex: Male
  Weight: 88 kg

DRUGS (7)
  1. ICLUSIG (PONATINIB) TABLET, 15MG [Suspect]
     Indication: ACUTE LYMPHOCYTIC LEUKAEMIA
     Route: 048
     Dates: start: 20130526, end: 20131107
  2. OXYCONTIN (OXYCODONE HYDROCHLORIDE) [Concomitant]
  3. FENTANYL (FENTANYL) [Concomitant]
  4. VERSED (MIDAZOLAM HYDROCHLORIDE) [Concomitant]
  5. HEPARIN (HEPARIN SODIUM) [Concomitant]
  6. ISOVUE (LOPAMIDOL) [Concomitant]
  7. OXYGEN (OXYGEN) [Concomitant]

REACTIONS (6)
  - Peripheral arterial occlusive disease [None]
  - Renal artery stenosis [None]
  - Mesenteric artery stenosis [None]
  - Mobility decreased [None]
  - Neuropathy peripheral [None]
  - Pain in extremity [None]
